FAERS Safety Report 21417328 (Version 1)
Quarter: 2022Q4

REPORT INFORMATION
  Report Type: Spontaneous
  Country: US (occurrence: US)
  Receive Date: 20221006
  Receipt Date: 20221006
  Transmission Date: 20230113
  Serious: Yes (Other)
  Sender: FDA-Public Use
  Company Number: US-VERTEX PHARMACEUTICALS-2022-014653

PATIENT
  Age: 43 Year
  Sex: Female

DRUGS (15)
  1. TRIKAFTA [Suspect]
     Active Substance: ELEXACAFTOR\IVACAFTOR\TEZACAFTOR
     Indication: Cystic fibrosis
     Dosage: 2 ORANGE TABS AM AND 1 BLUE TAB
     Route: 048
  2. AZTREONAM LYSINE [Suspect]
     Active Substance: AZTREONAM LYSINE
     Indication: Cystic fibrosis
     Dosage: 75 MG, 28 DAYS ON/ 28 DAYS OFF
     Dates: start: 201802
  3. AZTREONAM LYSINE [Suspect]
     Active Substance: AZTREONAM LYSINE
     Indication: Pseudomonas infection
  4. AZTREONAM LYSINE [Suspect]
     Active Substance: AZTREONAM LYSINE
     Indication: Cystic fibrosis lung
  5. ALBUTEROL SULFATE [Concomitant]
     Active Substance: ALBUTEROL SULFATE
  6. CREON [Concomitant]
     Active Substance: PANCRELIPASE AMYLASE\PANCRELIPASE LIPASE\PANCRELIPASE PROTEASE
  7. ALBUTEROL [Concomitant]
     Active Substance: ALBUTEROL
  8. SODIUM CHLORIDE [Concomitant]
     Active Substance: SODIUM CHLORIDE
  9. VITAMIN E [Concomitant]
     Active Substance: .ALPHA.-TOCOPHEROL
  10. TOBRAMYCIN [Concomitant]
     Active Substance: TOBRAMYCIN
  11. PULMOZYME [Concomitant]
     Active Substance: DORNASE ALFA
  12. VITAMIN D2 [Concomitant]
     Active Substance: ERGOCALCIFEROL
  13. PANTOPRAZOLE SODIUM [Concomitant]
     Active Substance: PANTOPRAZOLE SODIUM
  14. CODEINE SULFATE [Concomitant]
     Active Substance: CODEINE SULFATE
  15. ACETAMINOPHEN\HYDROCODONE [Concomitant]
     Active Substance: ACETAMINOPHEN\HYDROCODONE

REACTIONS (9)
  - Faeces discoloured [Unknown]
  - Liver function test increased [Not Recovered/Not Resolved]
  - Diarrhoea [Unknown]
  - Hepatic cirrhosis [Unknown]
  - Cystic fibrosis [Unknown]
  - Constipation [Unknown]
  - Intervertebral disc protrusion [Unknown]
  - Decreased activity [Unknown]
  - Enzyme level increased [Unknown]
